FAERS Safety Report 10102321 (Version 3)
Quarter: 2014Q2

REPORT INFORMATION
  Report Type: Spontaneous
  Country: US (occurrence: US)
  Receive Date: 20140424
  Receipt Date: 20140617
  Transmission Date: 20141212
  Serious: Yes (Hospitalization, Other)
  Sender: FDA-Public Use
  Company Number: US-UCBSA-106799

PATIENT
  Age: 62 Year
  Sex: Male
  Weight: 54 kg

DRUGS (4)
  1. CIMZIA [Suspect]
     Indication: CROHN^S DISEASE
     Dosage: 200 MG, EV 2 WEEKS(QOW)
     Route: 058
     Dates: start: 200907
  2. LYRICA [Concomitant]
     Indication: PAIN
     Dosage: 200 MG. FREQUENCY 1/1, THRICE DAILY
  3. TYLENOL [Concomitant]
     Indication: PAIN
     Dosage: EVENING
  4. B12 [Concomitant]
     Indication: SUPPLEMENTATION THERAPY
     Dosage: 1 ML, EV 2 WEEKS(QOW)

REACTIONS (4)
  - Pseudopolyposis [Recovered/Resolved]
  - Large intestinal obstruction [Recovered/Resolved]
  - Incorrect dose administered [Unknown]
  - Incorrect route of drug administration [Unknown]
